FAERS Safety Report 13853886 (Version 1)
Quarter: 2017Q3

REPORT INFORMATION
  Report Type: Spontaneous
  Country: US (occurrence: US)
  Receive Date: 20170810
  Receipt Date: 20170810
  Transmission Date: 20171127
  Serious: Yes (Death)
  Sender: FDA-Public Use
  Company Number: None

PATIENT
  Age: 88 Year
  Sex: Female

DRUGS (1)
  1. LETAIRIS [Suspect]
     Active Substance: AMBRISENTAN
     Indication: PULMONARY ARTERIAL HYPERTENSION
     Dosage: OV 2015 TO 03 SEP 2017
     Route: 048
     Dates: start: 20151111, end: 2017

REACTIONS (4)
  - Presyncope [None]
  - Joint dislocation [None]
  - Fall [None]
  - Myocardial infarction [None]

NARRATIVE: CASE EVENT DATE: 20170803
